FAERS Safety Report 25182755 (Version 2)
Quarter: 2025Q2

REPORT INFORMATION
  Report Type: Spontaneous
  Country: JP (occurrence: JP)
  Receive Date: 20250410
  Receipt Date: 20250620
  Transmission Date: 20250716
  Serious: Yes (Hospitalization)
  Sender: AMGEN
  Company Number: JP-KYOWAKIRIN-2025KK006192

PATIENT

DRUGS (1)
  1. DARBEPOETIN ALFA [Suspect]
     Active Substance: DARBEPOETIN ALFA
     Indication: Nephrogenic anaemia
     Route: 065

REACTIONS (3)
  - Hospitalisation [Unknown]
  - Therapeutic product effect incomplete [Unknown]
  - Serum ferritin increased [Unknown]
